FAERS Safety Report 15458107 (Version 1)
Quarter: 2018Q4

REPORT INFORMATION
  Report Type: Spontaneous
  Country: ES (occurrence: ES)
  Receive Date: 20181003
  Receipt Date: 20181003
  Transmission Date: 20190204
  Serious: Yes (Hospitalization, Other)
  Sender: FDA-Public Use
  Company Number: ES-SUN PHARMACEUTICAL INDUSTRIES LTD-2018RR-185867

PATIENT
  Age: 39 Year
  Sex: Female

DRUGS (3)
  1. GABAPENTIN. [Suspect]
     Active Substance: GABAPENTIN
     Indication: SPINAL PAIN
     Dosage: 300 MG, UNK
     Route: 048
     Dates: start: 20160817, end: 20160818
  2. FENTANILO (1543A) [Interacting]
     Active Substance: FENTANYL
     Indication: SPINAL PAIN
     Dosage: 50 UG, UNK
     Route: 062
     Dates: start: 20160817, end: 20160818
  3. DIAZEPAM (730A) [Interacting]
     Active Substance: DIAZEPAM
     Indication: SPINAL PAIN
     Dosage: 5 MG, QD
     Route: 048
     Dates: start: 2015

REACTIONS (1)
  - Encephalopathy [Recovered/Resolved]

NARRATIVE: CASE EVENT DATE: 20160818
